FAERS Safety Report 11020678 (Version 1)
Quarter: 2015Q2

REPORT INFORMATION
  Report Type: Spontaneous
  Country: FR (occurrence: FR)
  Receive Date: 20150413
  Receipt Date: 20150413
  Transmission Date: 20150821
  Serious: Yes (Hospitalization)
  Sender: FDA-Public Use
  Company Number: FR-ACCORD-029963

PATIENT
  Age: 63 Year
  Sex: Female

DRUGS (3)
  1. FOLINIC ACID [Suspect]
     Active Substance: LEUCOVORIN
     Indication: COLORECTAL CANCER
     Dosage: FOLFOX REGIMEN
     Route: 042
  2. FLUOROURACIL. [Suspect]
     Active Substance: FLUOROURACIL
     Indication: COLORECTAL CANCER
     Dosage: FOLFOX REGIMEN
     Route: 042
  3. OXALIPLATIN. [Suspect]
     Active Substance: OXALIPLATIN
     Indication: COLORECTAL CANCER
     Dosage: FOLFOX REGIMEN
     Route: 042

REACTIONS (17)
  - Pancytopenia [Unknown]
  - Septic shock [Unknown]
  - Bicytopenia [Unknown]
  - Hyperlactacidaemia [Unknown]
  - Hepatocellular injury [Unknown]
  - Cardiac arrest [Unknown]
  - Vaginal erosion [Unknown]
  - Multi-organ failure [Unknown]
  - Stomatitis [Unknown]
  - Pyrexia [Unknown]
  - Metabolic acidosis [Unknown]
  - Anal erosion [Unknown]
  - Coagulopathy [Unknown]
  - Intracranial haematoma [Unknown]
  - Pneumatosis intestinalis [Unknown]
  - Diarrhoea [Unknown]
  - Renal failure [Unknown]
